FAERS Safety Report 4713591-8 (Version None)
Quarter: 2005Q3

REPORT INFORMATION
  Report Type: 
  Country: None (occurrence: None)
  Receive Date: 20050713
  Receipt Date: 20050627
  Transmission Date: 20060218
  Serious: Yes (Death, Hospitalization)
  Sender: FDA-Public Use
  Company Number: 200511306DE

PATIENT
  Age: 47 Year
  Sex: Female

DRUGS (6)
  1. DOCETAXEL [Suspect]
     Indication: BREAST CANCER
     Route: 042
     Dates: start: 20050609, end: 20050609
  2. DOXORUBICIN [Suspect]
     Indication: BREAST CANCER
     Route: 042
     Dates: start: 20050609, end: 20050609
  3. CYCLOPHOSPHAMIDE [Suspect]
     Indication: BREAST CANCER
     Route: 042
     Dates: start: 20050609, end: 20050609
  4. PEGFILGRASTIM [Concomitant]
     Dates: end: 20050610
  5. FORTECORTIN [Concomitant]
     Dates: end: 20050609
  6. CIPROFLOXACIN [Concomitant]
     Dates: end: 20050623

REACTIONS (6)
  - BLOOD PRESSURE INCREASED [None]
  - HAEMORRHAGE INTRACRANIAL [None]
  - PNEUMONIA [None]
  - PYREXIA [None]
  - RESPIRATION ABNORMAL [None]
  - RUPTURED CEREBRAL ANEURYSM [None]
